FAERS Safety Report 8908490 (Version 3)
Quarter: 2015Q2

REPORT INFORMATION
  Report Type: Report from Study
  Country: US (occurrence: US)
  Receive Date: 20121114
  Receipt Date: 20150507
  Transmission Date: 20150821
  Serious: Yes (Death, Hospitalization)
  Sender: FDA-Public Use
  Company Number: PHHO2012US015126

PATIENT
  Age: 67 Year
  Sex: Female
  Weight: 61.7 kg

DRUGS (5)
  1. SCOPALAMINIE HYDROBROMIDE [Suspect]
     Active Substance: SCOPOLAMINE
     Indication: PRODUCT USED FOR UNKNOWN INDICATION
     Dosage: UNK
     Route: 065
  2. ATIVAN [Suspect]
     Active Substance: LORAZEPAM
     Indication: NAUSEA
     Dosage: UNK
     Route: 065
  3. ZOFRAN [Suspect]
     Active Substance: ONDANSETRON HYDROCHLORIDE
     Indication: NAUSEA
     Route: 065
  4. COMPAZINE [Suspect]
     Active Substance: PROCHLORPERAZINE MALEATE
     Indication: NAUSEA
     Route: 065
  5. TKI258 [Suspect]
     Active Substance: DOVITINIB LACTATE
     Indication: ADENOID CYSTIC CARCINOMA
     Dosage: 500 MG, QD X 5 DAYS
     Route: 048
     Dates: start: 20120725

REACTIONS (3)
  - Febrile neutropenia [Fatal]
  - Multi-organ failure [Fatal]
  - Pneumonia [Fatal]

NARRATIVE: CASE EVENT DATE: 20121018
